FAERS Safety Report 24631070 (Version 1)
Quarter: 2024Q4

REPORT INFORMATION
  Report Type: Spontaneous
  Country: US (occurrence: None)
  Receive Date: 20241117
  Receipt Date: 20241117
  Transmission Date: 20250114
  Serious: Yes (unspecified)
  Sender: Public
  Company Number: None

PATIENT
  Age: 41 Year
  Weight: 94.5 kg

DRUGS (5)
  1. AZSTARYS [Suspect]
     Active Substance: DEXMETHYLPHENIDATE HYDROCHLORIDE\SERDEXMETHYLPHENIDATE CHLORIDE
     Indication: Attention deficit hyperactivity disorder
     Dosage: 1 CAPSULES ORAL
     Route: 048
     Dates: start: 20241115, end: 20241116
  2. ROSUVASTATIN [Concomitant]
  3. multivitamin [Concomitant]
  4. Allergy Tablet [Concomitant]
  5. Heartburn reduction [Concomitant]

REACTIONS (5)
  - Heart rate increased [None]
  - Blood pressure increased [None]
  - Pain [None]
  - Malaise [None]
  - Fear of disease [None]

NARRATIVE: CASE EVENT DATE: 20241116
